FAERS Safety Report 7962576-7 (Version None)
Quarter: 2011Q4

REPORT INFORMATION
  Report Type: 
  Country: None (occurrence: None)
  Receive Date: 20111207
  Receipt Date: 20111205
  Transmission Date: 20120403
  Serious: Yes (Other)
  Sender: FDA-Public Use
  Company Number: FR-EISAI INC-E2090-01886-SPO-FR

PATIENT
  Sex: Female

DRUGS (3)
  1. ZONEGRAN [Suspect]
     Dosage: UNKNOWN
     Route: 048
     Dates: start: 20110401
  2. TEGRETOL [Concomitant]
     Dosage: UNKNOWN
  3. KEPPRA [Concomitant]
     Dosage: UNKNOWN

REACTIONS (5)
  - PERSONALITY DISORDER [None]
  - SOCIAL PROBLEM [None]
  - AGITATION [None]
  - WEIGHT DECREASED [None]
  - INSOMNIA [None]
